FAERS Safety Report 18404668 (Version 3)
Quarter: 2024Q4

REPORT INFORMATION
  Report Type: Report from Study
  Country: AT (occurrence: AT)
  Receive Date: 20201020
  Receipt Date: 20241223
  Transmission Date: 20250115
  Serious: Yes (Hospitalization, Other)
  Sender: TEVA
  Company Number: AT-EMA-DD-20200930-SAHARAN_H-110555

PATIENT
  Age: 66 Year
  Sex: Female
  Weight: 80.4 kg

DRUGS (103)
  1. LAPATINIB [Suspect]
     Active Substance: LAPATINIB
     Indication: Breast cancer
     Dosage: MOST RECENT DOSE PRIOR TO THE EVENT LYMPH NODE METASTATIS AXILLA AND PORT A CATH INFECTION: 08/JA...
     Route: 048
     Dates: start: 20191002, end: 20200107
  2. BETAMETHASONE DIPROPIONATE [Concomitant]
     Active Substance: BETAMETHASONE DIPROPIONATE
     Indication: Eczema
     Route: 001
     Dates: start: 20191122
  3. CAPECITABINE [Suspect]
     Active Substance: CAPECITABINE
     Indication: Breast cancer
     Dosage: MOST RECENT DOSE PRIOR TO THE EVENT LYMPH NODE METASTATIS AXILLA AND PORT A CATH INFECTION: 08/JA...
     Route: 048
     Dates: start: 20191002, end: 20200107
  4. EDOXABAN TOSYLATE [Concomitant]
     Active Substance: EDOXABAN TOSYLATE
     Indication: Product used for unknown indication
     Route: 065
     Dates: start: 20191120, end: 20200608
  5. HERCEPTIN [Suspect]
     Active Substance: TRASTUZUMAB
     Indication: Breast cancer metastatic
     Dosage: 624 MILLIGRAM, QD
     Route: 042
     Dates: start: 20170224, end: 20170224
  6. HERCEPTIN [Suspect]
     Active Substance: TRASTUZUMAB
     Indication: Breast cancer metastatic
     Dosage: 390 MILLIGRAM, UNK
     Route: 042
     Dates: start: 20170410, end: 20170427
  7. HERCEPTIN [Suspect]
     Active Substance: TRASTUZUMAB
     Indication: Breast cancer metastatic
     Dosage: 560 MILLIGRAM, Q3W
     Route: 042
     Dates: start: 20201230, end: 20210210
  8. HERCEPTIN [Suspect]
     Active Substance: TRASTUZUMAB
     Indication: Breast cancer metastatic
     Dosage: 462 MILLIGRAM, Q3W
     Route: 042
     Dates: start: 20170810, end: 20190213
  9. HERCEPTIN [Suspect]
     Active Substance: TRASTUZUMAB
     Indication: Breast cancer metastatic
     Dosage: 408 MILLIGRAM, Q3W
     Route: 042
     Dates: start: 20210317, end: 20210428
  10. HERCEPTIN [Suspect]
     Active Substance: TRASTUZUMAB
     Indication: Breast cancer metastatic
     Dosage: 414 MILLIGRAM, Q3W
     Route: 042
     Dates: start: 20170609, end: 20170630
  11. HERCEPTIN [Suspect]
     Active Substance: TRASTUZUMAB
     Indication: Breast cancer metastatic
     Dosage: 540 MILLIGRAM, Q3W
     Route: 042
     Dates: start: 20200422, end: 20200615
  12. HERCEPTIN [Suspect]
     Active Substance: TRASTUZUMAB
     Indication: Breast cancer metastatic
     Dosage: 432 MILLIGRAM, QD
     Route: 042
     Dates: start: 20170519, end: 20170519
  13. HERCEPTIN [Suspect]
     Active Substance: TRASTUZUMAB
     Indication: Breast cancer metastatic
     Dosage: 468 MILLIGRAM, QD
     Route: 042
     Dates: start: 20170720, end: 20170720
  14. PREGABALIN [Concomitant]
     Active Substance: PREGABALIN
     Indication: Product used for unknown indication
     Dosage: ONGOING = NOT CHECKED
     Route: 065
     Dates: start: 20190821, end: 20210616
  15. PANTOPRAZOLE SODIUM [Concomitant]
     Active Substance: PANTOPRAZOLE SODIUM
     Indication: Product used for unknown indication
     Dosage: PANTOPRAZOL [PANTOPRAZOLE]
     Route: 065
     Dates: start: 20170722, end: 20180327
  16. PANTOPRAZOLE SODIUM [Concomitant]
     Active Substance: PANTOPRAZOLE SODIUM
     Indication: Product used for unknown indication
     Route: 065
     Dates: start: 20200506, end: 20200519
  17. LOVENOX [Concomitant]
     Active Substance: ENOXAPARIN SODIUM
     Indication: Product used for unknown indication
     Route: 065
     Dates: start: 20170224, end: 20171130
  18. DRONABINOL [Concomitant]
     Active Substance: DRONABINOL
     Indication: Product used for unknown indication
     Dosage: ONGOING = NOT CHECKED
     Route: 065
     Dates: start: 20210608, end: 20210612
  19. TRASTUZUMAB [Suspect]
     Active Substance: TRASTUZUMAB
     Indication: Breast cancer metastatic
     Dosage: MOST RECENT DOSE PRIOR TO THE EVENTS: 10/AUG/2017, 624 MG
     Route: 042
     Dates: start: 20170224, end: 20170224
  20. OLEOVIT [Concomitant]
     Indication: Product used for unknown indication
     Route: 065
     Dates: start: 20170329
  21. PERTUZUMAB [Suspect]
     Active Substance: PERTUZUMAB
     Indication: Breast cancer metastatic
     Dosage: MOST RECENT DOSE PRIOR TO THE EVENT WORSENING OF BRAIN METASTASES: 17/MAR/2017 MOST RECENT DOSE P...
     Route: 042
     Dates: start: 20170224, end: 20170224
  22. HYDROMORPHONE HYDROCHLORIDE [Concomitant]
     Active Substance: HYDROMORPHONE HYDROCHLORIDE
     Indication: Product used for unknown indication
     Dosage: ONGOING = NOT CHECKED
     Route: 065
     Dates: start: 20210611, end: 20210615
  23. LEVOFLOXACIN [Concomitant]
     Active Substance: LEVOFLOXACIN
     Indication: Product used for unknown indication
     Route: 065
     Dates: start: 20200506, end: 20200512
  24. DOCETAXEL [Suspect]
     Active Substance: DOCETAXEL
     Indication: Breast cancer metastatic
     Dosage: MOST RECENT DOSE PRIOR TO THE EVENTS: 09/JUN/2017, 190 MG
     Route: 042
     Dates: start: 20170224, end: 20170317
  25. FENTANYL [Concomitant]
     Active Substance: FENTANYL
     Indication: Product used for unknown indication
     Route: 062
     Dates: start: 20200515
  26. ADO-TRASTUZUMAB EMTANSINE [Suspect]
     Active Substance: ADO-TRASTUZUMAB EMTANSINE
     Indication: Breast cancer metastatic
     Route: 042
     Dates: start: 20190306, end: 20190909
  27. EUTHYROX [Concomitant]
     Active Substance: LEVOTHYROXINE SODIUM
     Indication: Product used for unknown indication
     Dosage: ONGOING = NOT CHECKED
     Route: 065
     Dates: start: 20170303, end: 20210615
  28. LEUKICHTAN [Concomitant]
     Indication: Product used for unknown indication
     Route: 061
     Dates: start: 20200430, end: 20200515
  29. LEUKICHTAN [Concomitant]
     Indication: Product used for unknown indication
     Route: 065
     Dates: start: 20200430
  30. LEUKICHTAN [Concomitant]
     Indication: Product used for unknown indication
     Route: 065
     Dates: start: 20200430, end: 20200515
  31. XGEVA [Concomitant]
     Active Substance: DENOSUMAB
     Indication: Product used for unknown indication
     Dosage: ONGOING = NOT CHECKED
     Route: 065
     Dates: start: 20170202, end: 20210521
  32. TUCATINIB [Suspect]
     Active Substance: TUCATINIB
     Indication: Breast cancer metastatic
     Dosage: UNK
     Route: 065
     Dates: start: 20201230, end: 20210210
  33. CALCIUM CARBONATE\CHOLECALCIFEROL [Concomitant]
     Active Substance: CALCIUM CARBONATE\CHOLECALCIFEROL
     Indication: Product used for unknown indication
     Dosage: ONGOING = CHECKED
     Route: 065
     Dates: start: 20170203
  34. OLIVE OIL [Concomitant]
     Active Substance: OLIVE OIL
     Indication: Paronychia
     Route: 065
     Dates: start: 20191002, end: 20200512
  35. NERIFORTE [Concomitant]
     Indication: Skin fissures
     Route: 061
     Dates: start: 20200430, end: 20200515
  36. NERIFORTE [Concomitant]
     Indication: Skin fissures
     Route: 065
     Dates: start: 20200430, end: 20200515
  37. TAZOBACTAM [Concomitant]
     Active Substance: TAZOBACTAM
     Indication: Streptococcal sepsis
     Route: 065
     Dates: start: 20200423, end: 20200504
  38. ACETAMINOPHEN [Concomitant]
     Active Substance: ACETAMINOPHEN
     Indication: Product used for unknown indication
     Route: 065
     Dates: start: 20200506
  39. ACETAMINOPHEN [Concomitant]
     Active Substance: ACETAMINOPHEN
     Indication: Product used for unknown indication
     Dosage: ONGOING = NOT CHECKED
     Route: 065
     Dates: start: 20210622, end: 20210622
  40. DENOSUMAB [Suspect]
     Active Substance: DENOSUMAB
     Indication: Breast cancer metastatic
     Dosage: 120 MILLIGRAM, Q4W
     Route: 042
     Dates: start: 20201230, end: 20210210
  41. FUROSEMIDE [Concomitant]
     Active Substance: FUROSEMIDE
     Indication: Product used for unknown indication
     Dosage: ONGOING = NOT CHECKED
     Route: 065
     Dates: start: 20170810, end: 20171213
  42. ZOFRAN [Concomitant]
     Active Substance: ONDANSETRON HYDROCHLORIDE
     Indication: Gastrointestinal disorder
     Route: 065
     Dates: start: 20200506
  43. ZOFRAN [Concomitant]
     Active Substance: ONDANSETRON HYDROCHLORIDE
     Indication: Gastrointestinal disorder
     Dosage: ONGOING = NOT CHECKED
     Route: 065
     Dates: start: 20210612, end: 20210616
  44. ZOFRAN [Concomitant]
     Active Substance: ONDANSETRON HYDROCHLORIDE
     Indication: Gastrointestinal disorder
     Dosage: ONGOING = NOT CHECKED
     Route: 065
     Dates: start: 20210611, end: 20210612
  45. PERJETA [Suspect]
     Active Substance: PERTUZUMAB
     Indication: Breast cancer metastatic
     Dosage: 840 MILLIGRAM, QD
     Route: 042
     Dates: start: 20170224
  46. PERJETA [Suspect]
     Active Substance: PERTUZUMAB
     Indication: Breast cancer metastatic
     Dosage: 840 MILLIGRAM, QD
     Route: 042
     Dates: start: 20210317, end: 20210428
  47. PERJETA [Suspect]
     Active Substance: PERTUZUMAB
     Indication: Breast cancer metastatic
     Dosage: 840 MILLIGRAM, QD
     Route: 042
     Dates: start: 20200422, end: 20200615
  48. MORPHINE SULFATE [Concomitant]
     Active Substance: MORPHINE SULFATE
     Indication: Dyspnoea
     Dosage: ONGOING = NOT CHECKED
     Route: 065
     Dates: start: 20210521, end: 20210616
  49. MORPHINE SULFATE [Concomitant]
     Active Substance: MORPHINE SULFATE
     Indication: Dyspnoea
     Dosage: ONGOING = NOT CHECKED
     Route: 065
     Dates: start: 20210616, end: 20210623
  50. VINORELBINE [Suspect]
     Active Substance: VINORELBINE TARTRATE
     Indication: Breast cancer metastatic
     Route: 042
     Dates: start: 20200422
  51. KALIORAL [Concomitant]
     Indication: Product used for unknown indication
     Route: 065
     Dates: start: 20200427, end: 20200428
  52. LORAZEPAM [Concomitant]
     Active Substance: LORAZEPAM
     Indication: Restlessness
     Dosage: ONGOING = NOT CHECKED
     Route: 065
     Dates: start: 20210618, end: 20210623
  53. SCOTTOPECT [Concomitant]
     Indication: Cough
     Dosage: ONGOING = NOT CHECKED
     Route: 065
     Dates: start: 20210611, end: 20210613
  54. BETAISODONA [Concomitant]
     Active Substance: POVIDONE-IODINE
     Indication: Skin fissures
     Dosage: ONGOING NOT CHECKED
     Route: 065
     Dates: start: 20200430, end: 20200515
  55. DROPERIDOL [Concomitant]
     Active Substance: DROPERIDOL
     Indication: Gastrointestinal disorder
     Dosage: ONGOING = NOT CHECKED
     Route: 065
     Dates: start: 20210612, end: 20210617
  56. ENHERTU [Suspect]
     Active Substance: FAM-TRASTUZUMAB DERUXTECAN-NXKI
     Indication: Breast cancer metastatic
     Route: 065
     Dates: start: 20200814, end: 20201015
  57. XELODA [Suspect]
     Active Substance: CAPECITABINE
     Indication: Breast cancer metastatic
     Dosage: DAILY FOR 2 WEEKS THEN PAUSE FOR 1 WEEK
     Route: 048
     Dates: start: 20201230, end: 20210203
  58. XELODA [Suspect]
     Active Substance: CAPECITABINE
     Indication: Breast cancer metastatic
     Dosage: 3000 MILLIGRAM, QD
     Route: 048
     Dates: start: 20200108
  59. XELODA [Suspect]
     Active Substance: CAPECITABINE
     Indication: Breast cancer metastatic
     Dosage: 3500 MILLIGRAM, QD
     Route: 048
     Dates: start: 20191002, end: 20200107
  60. XELODA [Suspect]
     Active Substance: CAPECITABINE
     Indication: Breast cancer metastatic
     Dosage: 3500 MILLIGRAM, QD
     Route: 048
     Dates: start: 20210210, end: 20210224
  61. MORPHINE [Concomitant]
     Active Substance: MORPHINE
     Indication: Dyspnoea
     Dosage: ONGOING = NOT CHECKED
     Route: 065
     Dates: start: 20210521, end: 20210616
  62. ONDANSETRON [Concomitant]
     Active Substance: ONDANSETRON
     Indication: Gastrointestinal disorder
     Dosage: ONGOING = NOT CHECKED
     Route: 065
     Dates: start: 20210608, end: 20210610
  63. VITAMAX VITAMIN C [Concomitant]
     Indication: Gastrointestinal disorder
     Dosage: ONGOING = NOT CHECKED
     Route: 065
     Dates: start: 20210611, end: 20210614
  64. PARACODIN [Concomitant]
     Indication: Cough
     Dosage: ONGOING = NOT CHECKED
     Route: 065
     Dates: start: 20210608, end: 20210610
  65. PARACODIN [Concomitant]
     Indication: Cough
     Dosage: ONGOING = NOT CHECKED
     Route: 065
     Dates: start: 20210428, end: 20210615
  66. BLEOMYCIN [Suspect]
     Active Substance: BLEOMYCIN SULFATE
     Indication: Breast cancer metastatic
     Route: 042
     Dates: start: 20200519, end: 20200519
  67. BLEOMYCIN [Suspect]
     Active Substance: BLEOMYCIN SULFATE
     Indication: Breast cancer metastatic
     Route: 042
     Dates: start: 20210105, end: 20210105
  68. TUCATINIB [Suspect]
     Active Substance: TUCATINIB
     Indication: Breast cancer metastatic
     Route: 048
     Dates: end: 20210210
  69. NAVELBINE [Suspect]
     Active Substance: VINORELBINE TARTRATE
     Indication: Breast cancer metastatic
     Dosage: 45 MILLIGRAM, Q3W
     Route: 065
     Dates: start: 20200422, end: 20200722
  70. DOXIL [Suspect]
     Active Substance: DOXORUBICIN HYDROCHLORIDE
     Indication: Breast cancer metastatic
     Dosage: 104.4 MILLIGRAM, QD
     Route: 042
     Dates: start: 20210608, end: 20210608
  71. TAXOTERE [Suspect]
     Active Substance: DOCETAXEL
     Indication: Breast cancer metastatic
     Dosage: 134.25 MILLIGRAM, Q3W
     Route: 042
     Dates: start: 20210317, end: 20210428
  72. TAXOTERE [Suspect]
     Active Substance: DOCETAXEL
     Indication: Breast cancer metastatic
     Dosage: 190 MILLIGRAM, Q3W
     Route: 042
     Dates: start: 20170224
  73. TAXOTERE [Suspect]
     Active Substance: DOCETAXEL
     Indication: Breast cancer metastatic
     Dosage: 175 MILLIGRAM, UNK
     Route: 042
     Dates: start: 20170410, end: 20170427
  74. TAXOTERE [Suspect]
     Active Substance: DOCETAXEL
     Indication: Breast cancer metastatic
     Dosage: 180 MILLIGRAM, Q3W
     Route: 042
     Dates: start: 20170609, end: 20170630
  75. TAXOTERE [Suspect]
     Active Substance: DOCETAXEL
     Indication: Breast cancer metastatic
     Dosage: 183 MILLIGRAM, UNK
     Route: 042
     Dates: start: 20170519, end: 20170519
  76. KADCYLA [Suspect]
     Active Substance: ADO-TRASTUZUMAB EMTANSINE
     Indication: Breast cancer metastatic
     Dosage: 270 MILLIGRAM, Q3W
     Route: 042
     Dates: start: 20190306, end: 20190909
  77. CAL C VITA [Concomitant]
     Indication: Product used for unknown indication
     Dosage: ONGOING = NOT CHECKED
     Route: 065
     Dates: start: 20170203, end: 20210612
  78. ZIEXTENZO [Concomitant]
     Active Substance: PEGFILGRASTIM-BMEZ
     Indication: Product used for unknown indication
     Dosage: ONGOING = NOT CHECKED
     Route: 065
     Dates: start: 20210610, end: 20210610
  79. NOVALGIN [Concomitant]
     Indication: Product used for unknown indication
     Dosage: ONGOING = NOT CHECKED
     Route: 065
     Dates: start: 20210618, end: 20210618
  80. NOVALGIN [Concomitant]
     Indication: Product used for unknown indication
     Dosage: ONGOING = NOT CHECKED
     Route: 065
     Dates: start: 20210608, end: 20210612
  81. NOVALGIN [Concomitant]
     Indication: Product used for unknown indication
     Route: 065
     Dates: start: 20170329, end: 20180807
  82. HALSET [Concomitant]
     Indication: Cough
     Dosage: ONGOING = NOT CHECKED
     Route: 065
     Dates: start: 20210611, end: 20210615
  83. EMEND [Concomitant]
     Active Substance: APREPITANT
     Indication: Product used for unknown indication
     Route: 065
     Dates: start: 20200428, end: 20200430
  84. DEXAMETHASONE [Concomitant]
     Active Substance: DEXAMETHASONE
     Indication: Brain oedema
     Route: 065
     Dates: start: 20171004, end: 20171006
  85. DEXAMETHASONE [Concomitant]
     Active Substance: DEXAMETHASONE
     Indication: Brain oedema
     Dosage: ONGOING = NOT CHECKED
     Route: 065
     Dates: start: 20171007, end: 20171008
  86. DEXAMETHASONE [Concomitant]
     Active Substance: DEXAMETHASONE
     Indication: Brain oedema
     Route: 065
     Dates: start: 20200422, end: 20200505
  87. PASPERTIN [Concomitant]
     Indication: Gastrointestinal disorder
     Dosage: ONGOING = NOT CHECKED
     Route: 065
     Dates: start: 20210608, end: 20210610
  88. PASPERTIN [Concomitant]
     Indication: Gastrointestinal disorder
     Dosage: ONGOING = NOT CHECKED
     Route: 065
     Dates: start: 20210611, end: 20210623
  89. PASPERTIN [Concomitant]
     Indication: Gastrointestinal disorder
     Route: 065
     Dates: start: 20200506
  90. POLYETHYLENE GLYCOL 3350\POTASSIUM CHLORIDE\SODIUM BICARBONATE\SODIUM [Concomitant]
     Active Substance: POLYETHYLENE GLYCOL 3350\POTASSIUM CHLORIDE\SODIUM BICARBONATE\SODIUM CHLORIDE
     Indication: Product used for unknown indication
     Dosage: ONGOING = NOT CHECKED
     Route: 065
     Dates: start: 20210608, end: 20210616
  91. FASLODEX [Suspect]
     Active Substance: FULVESTRANT
     Indication: Breast cancer metastatic
     Dosage: 500 MILLIGRAM, QMONTH
     Route: 058
     Dates: start: 20171116, end: 20191001
  92. ACECLOFENAC AND PARACETAMOL [Concomitant]
     Indication: Product used for unknown indication
     Dosage: ONGOING = NOT CHECKED
     Route: 065
     Dates: start: 20210622, end: 20210622
  93. PONVERIDOL [Concomitant]
     Indication: Gastrointestinal disorder
     Dosage: ONGOING = NOT CHECKED
     Route: 065
     Dates: start: 20210618, end: 20210623
  94. TYKERB [Suspect]
     Active Substance: LAPATINIB DITOSYLATE
     Indication: Breast cancer metastatic
     Dosage: 1250 MILLIGRAM, QD
     Route: 048
     Dates: start: 20191002, end: 20200107
  95. TYKERB [Suspect]
     Active Substance: LAPATINIB DITOSYLATE
     Indication: Breast cancer metastatic
     Dosage: 1000 MILLIGRAM, QD
     Route: 048
     Dates: start: 20200108, end: 20200421
  96. ALPRAZOLAM [Concomitant]
     Active Substance: ALPRAZOLAM
     Indication: Restlessness
     Dosage: ONGOING = NOT CHECKED
     Route: 065
     Dates: start: 20210613, end: 20210615
  97. TEMESTA [Concomitant]
     Indication: Restlessness
     Route: 065
     Dates: start: 20210611, end: 20210621
  98. FASLODEX [Suspect]
     Active Substance: FULVESTRANT
     Indication: Breast cancer
     Dosage: MOST RECENT DOSE PRIOR TO THE EVENT LYMPH NODE METASTATIS AXILLA AND PORT A CATH INFECTION: 16/NO...
     Route: 058
     Dates: start: 20171002, end: 20171115
  99. KCL [Concomitant]
     Active Substance: POTASSIUM CHLORIDE
     Indication: Product used for unknown indication
     Route: 065
     Dates: start: 20170429
  100. SILICON [Concomitant]
     Active Substance: SILICON
     Indication: Skin fissures
     Route: 065
     Dates: start: 20200521, end: 20200602
  101. LACTULOSE [Concomitant]
     Active Substance: LACTULOSE
     Indication: Product used for unknown indication
     Route: 065
  102. BUTYLSCOPOLAMINE BROMIDE [Concomitant]
     Active Substance: BUTYLSCOPOLAMINE BROMIDE
     Indication: Gastrointestinal disorder
     Dosage: ONGOING = NOT CHECKED
     Route: 065
     Dates: start: 20210618, end: 20210618
  103. CARBOXYMETHYLCELLULOSE SODIUM [Concomitant]
     Active Substance: CARBOXYMETHYLCELLULOSE SODIUM
     Indication: Product used for unknown indication
     Route: 065

REACTIONS (21)
  - Pseudomonal sepsis [Recovered/Resolved]
  - Vascular device infection [Recovered/Resolved]
  - Pleural effusion [Recovered/Resolved]
  - Brain oedema [Not Recovered/Not Resolved]
  - Metastases to lymph nodes [Not Recovered/Not Resolved]
  - Metastases to central nervous system [Not Recovered/Not Resolved]
  - Vomiting [Recovered/Resolved]
  - Nausea [Recovered/Resolved]
  - Fatigue [Not Recovered/Not Resolved]
  - Candida infection [Not Recovered/Not Resolved]
  - Back pain [Recovered/Resolved]
  - Streptococcal sepsis [Recovered/Resolved]
  - Varicose vein [Not Recovered/Not Resolved]
  - Nail bed inflammation [Unknown]
  - Skin fissures [Recovered/Resolved]
  - Restlessness [Unknown]
  - C-reactive protein increased [Not Recovered/Not Resolved]
  - Eczema [Not Recovered/Not Resolved]
  - Sepsis [Recovered/Resolved]
  - Paronychia [Recovered/Resolved]
  - Nasal mucosal disorder [Recovered/Resolved]

NARRATIVE: CASE EVENT DATE: 20191101
